APPROVED DRUG PRODUCT: ISOSORBIDE MONONITRATE
Active Ingredient: ISOSORBIDE MONONITRATE
Strength: 10MG
Dosage Form/Route: TABLET;ORAL
Application: A075037 | Product #002 | TE Code: AB
Applicant: GENUS LIFESCIENCES INC
Approved: Oct 30, 1998 | RLD: No | RS: No | Type: RX